FAERS Safety Report 12237503 (Version 1)
Quarter: 2016Q2

REPORT INFORMATION
  Report Type: Spontaneous
  Country: ES (occurrence: None)
  Receive Date: 20160404
  Receipt Date: 20160404
  Transmission Date: 20160815
  Serious: Yes (Life-Threatening)
  Sender: FDA-Public Use
  Company Number: None

PATIENT
  Age: 43 Year
  Sex: Female
  Weight: 53 kg

DRUGS (6)
  1. CLORHEXIDINE DIGLUCONATE, 0.5% BOHMCLORH [Suspect]
     Active Substance: CHLORHEXIDINE GLUCONATE
     Indication: PREOPERATIVE CARE
     Dosage: USED ONCE APPLIED TO A SURFACE, USUALLY THE SKIN
     Route: 061
  2. FOLINIC ACID [Concomitant]
     Active Substance: LEUCOVORIN
  3. METHICOBALAMINE [Concomitant]
  4. COENZYME Q10 [Concomitant]
     Active Substance: UBIDECARENONE
  5. EUTIROX [Concomitant]
     Active Substance: LEVOTHYROXINE SODIUM
  6. MAGNESIUM CHLORIDE. [Concomitant]
     Active Substance: MAGNESIUM CHLORIDE

REACTIONS (3)
  - Skin discolouration [None]
  - Tremor [None]
  - Hypotension [None]

NARRATIVE: CASE EVENT DATE: 20160212
